FAERS Safety Report 21831448 (Version 1)
Quarter: 2023Q1

REPORT INFORMATION
  Report Type: Spontaneous
  Country: CO (occurrence: CO)
  Receive Date: 20230106
  Receipt Date: 20230106
  Transmission Date: 20230418
  Serious: Yes (Life-Threatening)
  Sender: FDA-Public Use
  Company Number: CO-BIOMARINAP-CO-2022-147775

PATIENT

DRUGS (1)
  1. VIMIZIM [Suspect]
     Active Substance: ELOSULFASE ALFA
     Indication: Mucopolysaccharidosis IV
     Dosage: 48 MILLIGRAM, QW
     Route: 042
     Dates: start: 20221124

REACTIONS (5)
  - Oxygen saturation decreased [Recovering/Resolving]
  - Tachypnoea [Recovering/Resolving]
  - Aspiration [Recovering/Resolving]
  - Hyperhidrosis [Recovering/Resolving]
  - Somnolence [Recovering/Resolving]

NARRATIVE: CASE EVENT DATE: 20221228
